FAERS Safety Report 16891598 (Version 2)
Quarter: 2019Q4

REPORT INFORMATION
  Report Type: Spontaneous
  Country: PR (occurrence: PR)
  Receive Date: 20191007
  Receipt Date: 20191031
  Transmission Date: 20200122
  Serious: Yes (Other)
  Sender: FDA-Public Use
  Company Number: PR-B.I. PHARMACEUTICALS,INC./RIDGEFIELD-2019-US-105235

PATIENT
  Sex: Female

DRUGS (1)
  1. SPIRIVA [Suspect]
     Active Substance: TIOTROPIUM BROMIDE MONOHYDRATE
     Indication: DYSPNOEA
     Dosage: 2 PUFFS IN THE MORNING AND 2 PUFFS IN THE EVENING
     Route: 065

REACTIONS (7)
  - Asphyxia [Unknown]
  - Chest pain [Unknown]
  - Fatigue [Unknown]
  - Product quality issue [Unknown]
  - Dyspnoea [Unknown]
  - Inappropriate schedule of product administration [Not Recovered/Not Resolved]
  - Cough [Unknown]
